FAERS Safety Report 4702769-5 (Version None)
Quarter: 2005Q2

REPORT INFORMATION
  Report Type: 
  Country: None (occurrence: None)
  Receive Date: 20050628
  Receipt Date: 20050628
  Transmission Date: 20051028
  Serious: No
  Sender: FDA-Public Use
  Company Number: None

PATIENT
  Sex: Female

DRUGS (1)
  1. NABUMETONE [Suspect]
     Dates: start: 20050519, end: 20050519

REACTIONS (1)
  - HEART RATE IRREGULAR [None]
